FAERS Safety Report 6690803-5 (Version None)
Quarter: 2010Q2

REPORT INFORMATION
  Report Type: 
  Country: None (occurrence: None)
  Receive Date: 20100421
  Receipt Date: 20100414
  Transmission Date: 20101027
  Serious: Yes (Hospitalization)
  Sender: FDA-Public Use
  Company Number: GB-BAXTER-2009BH019761

PATIENT
  Age: 66 Year
  Sex: Male

DRUGS (6)
  1. HEPARIN SODIUM 1,000 UNITS AND SODIUM CHLORIDE 0.9% [Suspect]
     Indication: INTRAVENOUS CATHETER MANAGEMENT
     Route: 013
     Dates: start: 20091221, end: 20091221
  2. VISIPAQUE [Suspect]
     Indication: ANGIOGRAM
     Route: 013
     Dates: start: 20091221, end: 20091221
  3. ATENOLOL [Concomitant]
     Indication: DRUG USE FOR UNKNOWN INDICATION
     Route: 048
  4. SIMVASTATIN [Concomitant]
     Indication: DRUG USE FOR UNKNOWN INDICATION
     Route: 065
  5. NITROGLYCERIN [Concomitant]
     Indication: ANGIOGRAM
     Route: 060
     Dates: start: 20091221
  6. LIDOCAINE [Concomitant]
     Indication: ANGIOGRAM
     Route: 058
     Dates: start: 20091221

REACTIONS (1)
  - CEREBROVASCULAR ACCIDENT [None]
